FAERS Safety Report 5918189-1 (Version None)
Quarter: 2008Q3

REPORT INFORMATION
  Report Type: 
  Country: None (occurrence: None)
  Receive Date: 20080909
  Receipt Date: 20080619
  Transmission Date: 20090109
  Serious: Yes (Hospitalization)
  Sender: FDA-Public Use
  Company Number: 144-20785-08061399

PATIENT
  Age: 58 Year
  Sex: Female

DRUGS (3)
  1. THALIDOMIDE [Suspect]
     Indication: MULTIPLE MYELOMA
     Dosage: 50 MG QD ORAL
     Route: 048
     Dates: start: 20080328, end: 20080412
  2. DEXAMETHASONE TAB [Suspect]
     Indication: MULTIPLE MYELOMA
     Dosage: 40 MG UNKNOWN
     Dates: start: 20080328, end: 20080408
  3. VELCADE [Suspect]
     Indication: MULTIPLE MYELOMA

REACTIONS (1)
  - RENAL FAILURE [None]
